FAERS Safety Report 12154736 (Version 1)
Quarter: 2016Q1

REPORT INFORMATION
  Report Type: Spontaneous
  Country: US (occurrence: None)
  Receive Date: 20160304
  Receipt Date: 20160304
  Transmission Date: 20160526
  Serious: Yes (Death)
  Sender: FDA-Public Use
  Company Number: None

PATIENT

DRUGS (2)
  1. HUMALOG [Suspect]
     Active Substance: INSULIN LISPRO
     Indication: HEART TRANSPLANT
     Dosage: 4 UNITS TID BEFORE MEALS TID SUBCUTANEOUS
     Route: 058
     Dates: start: 20150807
  2. LANTUS SOLOSTAR [Suspect]
     Active Substance: INSULIN GLARGINE
     Indication: HEART TRANSPLANT
     Route: 058
     Dates: start: 20150807

REACTIONS (1)
  - Death [None]

NARRATIVE: CASE EVENT DATE: 20160210
